FAERS Safety Report 5753372-X (Version None)
Quarter: 2008Q2

REPORT INFORMATION
  Report Type: 
  Country: None (occurrence: None)
  Receive Date: 20080530
  Receipt Date: 20080521
  Transmission Date: 20081010
  Serious: Yes (Other)
  Sender: FDA-Public Use
  Company Number: US-ELI_LILLY_AND_COMPANY-US200805004691

PATIENT
  Age: 55 Year
  Sex: Male

DRUGS (2)
  1. ALIMTA [Suspect]
     Indication: NON-SMALL CELL LUNG CANCER RECURRENT
     Dosage: 865 MG/KG, OTHER
     Route: 042
     Dates: start: 20080423, end: 20080503
  2. AVASTIN [Concomitant]
     Indication: NON-SMALL CELL LUNG CANCER RECURRENT
     Dosage: 900 MG/M2, OTHER
     Dates: start: 20080423

REACTIONS (2)
  - DYSPNOEA [None]
  - EJECTION FRACTION DECREASED [None]
